FAERS Safety Report 15863587 (Version 1)
Quarter: 2019Q1

REPORT INFORMATION
  Report Type: Spontaneous
  Country: US (occurrence: US)
  Receive Date: 20190124
  Receipt Date: 20190124
  Transmission Date: 20190417
  Serious: No
  Sender: FDA-Public Use
  Company Number: None

PATIENT
  Age: 39 Year
  Sex: Female
  Weight: 69.75 kg

DRUGS (17)
  1. CHOLECALCIFEROL [Concomitant]
     Active Substance: CHOLECALCIFEROL
  2. MIRALAX [Concomitant]
     Active Substance: POLYETHYLENE GLYCOL 3350
  3. INDOMETHAXIN [Concomitant]
  4. PELVIC FLOOR PAIN CREAM [Concomitant]
  5. HIGH FLOW OXYGEN [Concomitant]
  6. BUPROPION. [Concomitant]
     Active Substance: BUPROPION
  7. LEVETIRACETAM. [Concomitant]
     Active Substance: LEVETIRACETAM
  8. AIMOVIG [Suspect]
     Active Substance: ERENUMAB-AOOE
     Indication: PROPHYLAXIS
     Dosage: ?          QUANTITY:1 INJECTION(S);OTHER FREQUENCY:ONCE MONTHLY;OTHER ROUTE:SUBCUTANEOUS INJECTION?
     Route: 058
     Dates: start: 20190122
  9. BACLOFEN. [Concomitant]
     Active Substance: BACLOFEN
  10. ENBREL [Concomitant]
     Active Substance: ETANERCEPT
  11. OXYCODONE/ACETAMINOPHEN [Concomitant]
     Active Substance: ACETAMINOPHEN\OXYCODONE HYDROCHLORIDE
  12. PANTOPRAZOLE [Concomitant]
     Active Substance: PANTOPRAZOLE
  13. ONDANSETRON [Concomitant]
     Active Substance: ONDANSETRON
  14. AIMOVIG [Suspect]
     Active Substance: ERENUMAB-AOOE
     Indication: CLUSTER HEADACHE
     Dosage: ?          QUANTITY:1 INJECTION(S);OTHER FREQUENCY:ONCE MONTHLY;OTHER ROUTE:SUBCUTANEOUS INJECTION?
     Route: 058
     Dates: start: 20190122
  15. HYDROXYCHLOROQUINE [Concomitant]
     Active Substance: HYDROXYCHLOROQUINE
  16. BI-EST/PROGESTERONE/TESTOSTERONE (HRT) [Concomitant]
  17. DULCOLAX NOS [Concomitant]
     Active Substance: BISACODYL OR DOCUSATE SODIUM

REACTIONS (15)
  - Impaired driving ability [None]
  - Dizziness [None]
  - Chest discomfort [None]
  - Fatigue [None]
  - Paresis [None]
  - Muscle spasms [None]
  - Judgement impaired [None]
  - Nausea [None]
  - Vision blurred [None]
  - Chest pain [None]
  - Paraesthesia [None]
  - Headache [None]
  - Feeling abnormal [None]
  - Loss of personal independence in daily activities [None]
  - Dyspnoea [None]

NARRATIVE: CASE EVENT DATE: 20190123
